FAERS Safety Report 19431088 (Version 1)
Quarter: 2021Q2

REPORT INFORMATION
  Report Type: Spontaneous
  Country: US (occurrence: US)
  Receive Date: 20210618
  Receipt Date: 20210618
  Transmission Date: 20210717
  Serious: No
  Sender: FDA-Public Use
  Company Number: US-ROCHE-2756516

PATIENT
  Age: 60 Year
  Sex: Female
  Weight: 95.34 kg

DRUGS (1)
  1. ACTEMRA [Suspect]
     Active Substance: TOCILIZUMAB
     Indication: RHEUMATOID ARTHRITIS
     Route: 058
     Dates: start: 2016

REACTIONS (5)
  - Hip arthroplasty [Unknown]
  - Blister [Unknown]
  - Spinal fusion surgery [Unknown]
  - Spinal operation [Unknown]
  - Rash [Unknown]

NARRATIVE: CASE EVENT DATE: 2017
